FAERS Safety Report 7444251-0 (Version None)
Quarter: 2011Q2

REPORT INFORMATION
  Report Type: 
  Country: None (occurrence: None)
  Receive Date: 20110419
  Receipt Date: 20110405
  Transmission Date: 20111010
  Serious: Yes (Hospitalization)
  Sender: FDA-Public Use
  Company Number: NL-004586

PATIENT
  Age: 82 Year
  Sex: Female

DRUGS (1)
  1. DESMOPRESSIN ACETATE [Suspect]
     Indication: NOCTURIA
     Dosage: (0.2 MG QD ORAL)
     Route: 048

REACTIONS (12)
  - SOMNOLENCE [None]
  - INAPPROPRIATE ANTIDIURETIC HORMONE SECRETION [None]
  - VOMITING [None]
  - NAUSEA [None]
  - NERVOUS SYSTEM DISORDER [None]
  - NOCTURIA [None]
  - ALTERED STATE OF CONSCIOUSNESS [None]
  - COMMUNICATION DISORDER [None]
  - POOR QUALITY SLEEP [None]
  - PALLOR [None]
  - BLOOD PRESSURE SYSTOLIC INCREASED [None]
  - MEMORY IMPAIRMENT [None]
